FAERS Safety Report 15848318 (Version 9)
Quarter: 2019Q3

REPORT INFORMATION
  Report Type: Spontaneous
  Country: US (occurrence: US)
  Receive Date: 20190121
  Receipt Date: 20190820
  Transmission Date: 20191004
  Serious: Yes (Hospitalization, Other)
  Sender: FDA-Public Use
  Company Number: US-PFIZER INC-2019026311

PATIENT
  Age: 68 Year
  Sex: Female

DRUGS (2)
  1. XELJANZ XR [Suspect]
     Active Substance: TOFACITINIB CITRATE
     Dosage: 11 MG, 1X/DAY
     Route: 048
     Dates: start: 20190103
  2. XELJANZ XR [Suspect]
     Active Substance: TOFACITINIB CITRATE
     Indication: RHEUMATOID ARTHRITIS
     Dosage: 11 MG, UNK
     Dates: start: 20181224

REACTIONS (15)
  - Balance disorder [Unknown]
  - Memory impairment [Not Recovered/Not Resolved]
  - Depression [Not Recovered/Not Resolved]
  - Lichen sclerosus [Unknown]
  - Pulmonary mass [Recovered/Resolved]
  - Hypercalcaemia [Unknown]
  - Granuloma [Unknown]
  - Fatigue [Unknown]
  - Oral discomfort [Unknown]
  - Muscle spasms [Unknown]
  - Anxiety [Not Recovered/Not Resolved]
  - Somnolence [Unknown]
  - Weight increased [Unknown]
  - Dyspnoea [Unknown]
  - Chills [Unknown]

NARRATIVE: CASE EVENT DATE: 20190318
